FAERS Safety Report 24601520 (Version 2)
Quarter: 2024Q4

REPORT INFORMATION
  Report Type: Report from Study
  Country: US (occurrence: US)
  Receive Date: 20241111
  Receipt Date: 20241121
  Transmission Date: 20250115
  Serious: Yes (Other)
  Sender: INSMED
  Company Number: US-INSMED, INC.-2024-03977-US

PATIENT
  Sex: Male

DRUGS (3)
  1. ARIKAYCE [Suspect]
     Active Substance: AMIKACIN
     Indication: Mycobacterium avium complex infection
     Dosage: 590 MILLIGRAM, TIW
     Route: 055
     Dates: start: 20241001, end: 202410
  2. ARIKAYCE [Suspect]
     Active Substance: AMIKACIN
     Dosage: 590 MILLIGRAM, QD
     Route: 055
     Dates: start: 202410, end: 202410
  3. ALBUTEROL [Concomitant]
     Active Substance: ALBUTEROL
     Indication: Product used for unknown indication
     Dosage: 9-10 TIMES A DAY
     Route: 065

REACTIONS (13)
  - Loss of consciousness [Unknown]
  - Secretion discharge [Not Recovered/Not Resolved]
  - Incontinence [Not Recovered/Not Resolved]
  - Choking [Not Recovered/Not Resolved]
  - Enuresis [Not Recovered/Not Resolved]
  - Dysstasia [Unknown]
  - Insomnia [Not Recovered/Not Resolved]
  - Retching [Unknown]
  - Cough [Recovering/Resolving]
  - Fatigue [Not Recovered/Not Resolved]
  - Dizziness [Not Recovered/Not Resolved]
  - Dyspnoea [Not Recovered/Not Resolved]
  - Off label use [Unknown]

NARRATIVE: CASE EVENT DATE: 20240101
